FAERS Safety Report 16313971 (Version 4)
Quarter: 2019Q2

REPORT INFORMATION
  Report Type: Report from Study
  Country: US (occurrence: US)
  Receive Date: 20190515
  Receipt Date: 20190620
  Transmission Date: 20190711
  Serious: Yes (Other)
  Sender: FDA-Public Use
  Company Number: US-PFIZER INC-2019189396

PATIENT
  Age: 77 Year
  Sex: Female

DRUGS (2)
  1. IBRANCE [Suspect]
     Active Substance: PALBOCICLIB
     Indication: BREAST CANCER FEMALE
     Dosage: 125 MG, CYCLIC (DAILY, 21 DAYS ON AND 7 DAYS OFF)
     Route: 048
     Dates: start: 20190416
  2. IBRANCE [Suspect]
     Active Substance: PALBOCICLIB
     Dosage: 100 MG, CYCLIC (21 DAYS ON AND 7 DAYS OFF)
     Route: 048
     Dates: start: 20190611

REACTIONS (28)
  - Limb discomfort [Unknown]
  - Arthralgia [Unknown]
  - Condition aggravated [Unknown]
  - Insomnia [Unknown]
  - Alopecia [Unknown]
  - Dysuria [Recovering/Resolving]
  - Burning sensation [Not Recovered/Not Resolved]
  - Neck pain [Unknown]
  - Gastrooesophageal reflux disease [Not Recovered/Not Resolved]
  - Tumour marker increased [Unknown]
  - Pain in extremity [Unknown]
  - Musculoskeletal chest pain [Unknown]
  - Flank pain [Unknown]
  - Eye pain [Unknown]
  - Muscle spasms [Unknown]
  - Hot flush [Unknown]
  - Stomatitis [Recovering/Resolving]
  - Madarosis [Unknown]
  - Vascular pain [Unknown]
  - Full blood count decreased [Unknown]
  - Headache [Unknown]
  - Lethargy [Unknown]
  - Heart rate decreased [Unknown]
  - Bone marrow failure [Recovering/Resolving]
  - Fatigue [Unknown]
  - Dyspepsia [Unknown]
  - Nausea [Not Recovered/Not Resolved]
  - Abdominal pain [Unknown]

NARRATIVE: CASE EVENT DATE: 2019
